FAERS Safety Report 6159948-2 (Version None)
Quarter: 2009Q2

REPORT INFORMATION
  Report Type: 
  Country: None (occurrence: None)
  Receive Date: 20090415
  Receipt Date: 20090331
  Transmission Date: 20091009
  Serious: Yes (Hospitalization)
  Sender: FDA-Public Use
  Company Number: DSA_33448_2009

PATIENT
  Age: 70 Year
  Sex: Female

DRUGS (5)
  1. ENALAPRIL MALEATE [Suspect]
     Indication: HYPERTENSION
     Dosage: (5 MG BID ORAL)
     Route: 048
     Dates: start: 20031201
  2. TORSEMIDE [Concomitant]
  3. KELTICAN N [Concomitant]
  4. SIMVABETA (UNKNOWN) [Concomitant]
  5. MAGNESIUM (UNKNOWN) [Concomitant]

REACTIONS (7)
  - AORTIC VALVE INCOMPETENCE [None]
  - BALANCE DISORDER [None]
  - CONCOMITANT DISEASE PROGRESSION [None]
  - DEAFNESS [None]
  - MITRAL VALVE INCOMPETENCE [None]
  - NEUROPATHY PERIPHERAL [None]
  - SPEECH DISORDER [None]
